FAERS Safety Report 14510910 (Version 8)
Quarter: 2021Q1

REPORT INFORMATION
  Report Type: Other
  Country: DE (occurrence: DE)
  Receive Date: 20180209
  Receipt Date: 20210104
  Transmission Date: 20210419
  Serious: Yes (Other)
  Sender: FDA-Public Use
  Company Number: DE-ROCHE-2068968

PATIENT
  Age: 52 Year
  Sex: Male

DRUGS (11)
  1. OCREVUS [Suspect]
     Active Substance: OCRELIZUMAB
     Indication: PRIMARY PROGRESSIVE MULTIPLE SCLEROSIS
     Dosage: THEN 600 MG
     Route: 042
     Dates: start: 20170715
  2. FAMPYRA [Concomitant]
     Active Substance: DALFAMPRIDINE
  3. TIOBLIS [Concomitant]
     Active Substance: ATORVASTATIN CALCIUM\EZETIMIBE
     Dosage: FORM STRENGTH: 10MG/40MG
  4. MIRTAZAPIN [Concomitant]
     Active Substance: MIRTAZAPINE
     Dosage: IN THE EVENING
  5. DEKRISTOL [Concomitant]
     Active Substance: CHOLECALCIFEROL
  6. OCREVUS [Suspect]
     Active Substance: OCRELIZUMAB
     Route: 042
     Dates: start: 20180701, end: 20191107
  7. DEKRISTOL [Concomitant]
     Active Substance: CHOLECALCIFEROL
  8. BALDRIAN [Concomitant]
     Active Substance: VALERIAN
     Dosage: AS REQUIRED
  9. OCREVUS [Suspect]
     Active Substance: OCRELIZUMAB
     Route: 042
  10. LASEA [Concomitant]
  11. PANTOPRAZOL [Concomitant]
     Active Substance: PANTOPRAZOLE SODIUM
     Dosage: AS REQUIRED

REACTIONS (8)
  - Multiple sclerosis relapse [Unknown]
  - B-lymphocyte count increased [Recovered/Resolved]
  - Loose tooth [Recovered/Resolved]
  - Drug ineffective [Unknown]
  - Gait disturbance [Not Recovered/Not Resolved]
  - Heart rate increased [Recovered/Resolved]
  - Infection susceptibility increased [Not Recovered/Not Resolved]
  - Abdominal pain upper [Not Recovered/Not Resolved]

NARRATIVE: CASE EVENT DATE: 20180423
